FAERS Safety Report 12506506 (Version 1)
Quarter: 2016Q2

REPORT INFORMATION
  Report Type: Spontaneous
  Country: MN (occurrence: MN)
  Receive Date: 20160628
  Receipt Date: 20160628
  Transmission Date: 20160815
  Serious: Yes (Hospitalization)
  Sender: FDA-Public Use
  Company Number: MN-GILEAD-2016-0220489

PATIENT
  Age: 79 Year
  Sex: Male
  Weight: 72 kg

DRUGS (10)
  1. MAGNESIUM SULFATE. [Concomitant]
     Active Substance: MAGNESIUM SULFATE
  2. HARVONI [Suspect]
     Active Substance: LEDIPASVIR\SOFOSBUVIR
     Indication: CHRONIC HEPATITIS C
     Dosage: 1 DF, QD
     Route: 048
     Dates: start: 20160109, end: 20160216
  3. ANALGIN                            /00374501/ [Concomitant]
  4. DIMEDROL [Concomitant]
     Active Substance: DIPHENHYDRAMINE
  5. VALSARTAN. [Concomitant]
     Active Substance: VALSARTAN
     Dosage: 160 MG, QD
  6. AMITRIPTYLINE [Concomitant]
     Active Substance: AMITRIPTYLINE
     Dosage: UNK, QHS
  7. ENALAPRIL [Concomitant]
     Active Substance: ENALAPRIL
     Dosage: 10 MG, UNK
  8. NICOTINIC ACID [Concomitant]
     Active Substance: NIACIN
     Route: 030
  9. DIBAZOL [Concomitant]
     Route: 042
  10. ACTOVEGIN [Concomitant]
     Active Substance: UNSPECIFIED INGREDIENT
     Route: 030

REACTIONS (4)
  - Tachycardia [Unknown]
  - Fatigue [Unknown]
  - Hypertension [Unknown]
  - Insomnia [Unknown]

NARRATIVE: CASE EVENT DATE: 20160128
